FAERS Safety Report 25872212 (Version 1)
Quarter: 2025Q4

REPORT INFORMATION
  Report Type: Report from Study
  Country: EU (occurrence: EU)
  Receive Date: 20251002
  Receipt Date: 20251002
  Transmission Date: 20260118
  Serious: Yes (Other)
  Sender: ABBVIE
  Company Number: EU-ABBVIE-6341922

PATIENT
  Age: 80 Year
  Sex: Female
  Weight: 50 kg

DRUGS (4)
  1. FOSCARBIDOPA\FOSLEVODOPA [Suspect]
     Active Substance: FOSCARBIDOPA\FOSLEVODOPA
     Indication: Parkinson^s disease
     Dosage: DURATION OF THE DAILY INFUSION: 24 HOURS.?BASIC FLOW: 0.3 ML/H, DURATION 13 HOURS IN MORNING AND ...
     Route: 058
     Dates: start: 20250424
  2. ROPINIROLE [Concomitant]
     Active Substance: ROPINIROLE
     Indication: Parkinson^s disease
     Dates: start: 20171002
  3. VITAMIN B1 [Concomitant]
     Active Substance: THIAMINE HYDROCHLORIDE
     Indication: Product used for unknown indication
     Dates: start: 20250507
  4. VITAMIN B6 [Concomitant]
     Active Substance: PYRIDOXINE HYDROCHLORIDE
     Indication: Product used for unknown indication
     Dates: start: 20250507

REACTIONS (2)
  - Hip arthroplasty [Recovering/Resolving]
  - Acetabulum fracture [Recovering/Resolving]

NARRATIVE: CASE EVENT DATE: 20250101
